FAERS Safety Report 9378108 (Version 3)
Quarter: 2013Q3

REPORT INFORMATION
  Report Type: Report from Study
  Country: JP (occurrence: JP)
  Receive Date: 20130701
  Receipt Date: 20130820
  Transmission Date: 20140515
  Serious: Yes (Life-Threatening)
  Sender: FDA-Public Use
  Company Number: JP-GLAXOSMITHKLINE-B0871523A

PATIENT
  Age: 66 Year
  Sex: Female
  Weight: 60 kg

DRUGS (8)
  1. VOTRIENT [Suspect]
     Indication: LEIOMYOSARCOMA
     Dosage: 800MG PER DAY
     Route: 048
     Dates: start: 20130213, end: 20130220
  2. VOTRIENT [Suspect]
     Indication: LEIOMYOSARCOMA
     Dosage: 800MG PER DAY
     Route: 048
     Dates: start: 20130227, end: 20130305
  3. VOTRIENT [Suspect]
     Indication: LEIOMYOSARCOMA
     Dosage: 600MG PER DAY
     Route: 048
     Dates: start: 20130306, end: 20130327
  4. VOTRIENT [Suspect]
     Indication: LEIOMYOSARCOMA
     Dosage: 400MG PER DAY
     Route: 048
     Dates: start: 20130410
  5. FEMARA [Concomitant]
     Route: 048
  6. DIOVAN [Concomitant]
     Route: 048
  7. AMLODIN [Concomitant]
     Route: 048
  8. CHINESE MEDICINE [Concomitant]
     Route: 048

REACTIONS (10)
  - Hepatic function abnormal [Not Recovered/Not Resolved]
  - Vomiting [Recovered/Resolved]
  - Diarrhoea [Recovered/Resolved]
  - Decreased appetite [Recovered/Resolved]
  - Proteinuria [Not Recovered/Not Resolved]
  - Nausea [Recovered/Resolved]
  - White blood cell count decreased [Unknown]
  - Platelet count decreased [Unknown]
  - Oedema peripheral [Unknown]
  - Malaise [Unknown]
